FAERS Safety Report 22056074 (Version 5)
Quarter: 2024Q2

REPORT INFORMATION
  Report Type: Spontaneous
  Country: GB (occurrence: CH)
  Receive Date: 20230302
  Receipt Date: 20240613
  Transmission Date: 20240717
  Serious: Yes (Hospitalization, Other)
  Sender: FDA-Public Use
  Company Number: GB-VERTEX PHARMACEUTICALS-2023-002934

PATIENT
  Age: 9 Year
  Sex: Male
  Weight: 25 kg

DRUGS (5)
  1. TRIKAFTA [Suspect]
     Active Substance: ELEXACAFTOR\IVACAFTOR\TEZACAFTOR
     Indication: Cystic fibrosis
     Dosage: 200MG ELEXA/ 100MG TEZA/ 150 MG IVA AND 150MG IVA
     Route: 048
     Dates: start: 202207, end: 2022
  2. TRIKAFTA [Suspect]
     Active Substance: ELEXACAFTOR\IVACAFTOR\TEZACAFTOR
     Dosage: REDUCED; 100MG ELEXA/50MG TEZA/75MG IVA AND 75MG IVA
     Route: 048
     Dates: start: 2022
  3. TRIKAFTA [Suspect]
     Active Substance: ELEXACAFTOR\IVACAFTOR\TEZACAFTOR
     Dosage: 1/4TH PEDIATRIC DOSE
     Route: 048
     Dates: start: 202307
  4. TRIKAFTA [Suspect]
     Active Substance: ELEXACAFTOR\IVACAFTOR\TEZACAFTOR
     Dosage: HALF PEDIATRIC DOSE
     Route: 048
  5. SODIUM CHLORIDE [Concomitant]
     Active Substance: SODIUM CHLORIDE

REACTIONS (4)
  - Idiopathic intracranial hypertension [Recovered/Resolved]
  - VIth nerve paralysis [Recovered/Resolved]
  - Vitamin A increased [Unknown]
  - Strabismus [Recovered/Resolved]

NARRATIVE: CASE EVENT DATE: 20220101
